FAERS Safety Report 25789816 (Version 2)
Quarter: 2025Q3

REPORT INFORMATION
  Report Type: Spontaneous
  Country: EU (occurrence: EU)
  Receive Date: 20250911
  Receipt Date: 20250929
  Transmission Date: 20251020
  Serious: Yes (Other)
  Sender: AMGEN
  Company Number: EU-AMGEN-ROUSP2025179352

PATIENT
  Age: 54 Year
  Sex: Male

DRUGS (4)
  1. VECTIBIX [Suspect]
     Active Substance: PANITUMUMAB
     Indication: Colorectal cancer metastatic
     Route: 040
     Dates: start: 20230501
  2. LEUCOVORIN [Suspect]
     Active Substance: LEUCOVORIN\LEUCOVORIN CALCIUM
     Indication: Colorectal cancer metastatic
     Route: 065
     Dates: start: 20230501
  3. FLUOROURACIL [Suspect]
     Active Substance: FLUOROURACIL
     Indication: Colorectal cancer metastatic
     Route: 065
     Dates: start: 20230501
  4. OXALIPLATIN [Suspect]
     Active Substance: OXALIPLATIN
     Indication: Colorectal cancer metastatic
     Route: 065
     Dates: start: 20230501

REACTIONS (3)
  - Polyneuropathy [Not Recovered/Not Resolved]
  - Anaemia [Not Recovered/Not Resolved]
  - Skin toxicity [Not Recovered/Not Resolved]
